FAERS Safety Report 7811267-1 (Version None)
Quarter: 2011Q4

REPORT INFORMATION
  Report Type: 
  Country: None (occurrence: None)
  Receive Date: 20111012
  Receipt Date: 20111012
  Transmission Date: 20120403
  Serious: Yes (Other)
  Sender: FDA-Public Use
  Company Number: None

PATIENT
  Sex: Female
  Weight: 40.3701 kg

DRUGS (1)
  1. CELEBREX [Suspect]
     Indication: SYSTEMIC LUPUS ERYTHEMATOSUS
     Dosage: 200MG TWICE A DAY ORAL
     Route: 048
     Dates: start: 20110601, end: 20110909

REACTIONS (7)
  - BLISTER [None]
  - ASTHMA [None]
  - ERYTHEMA [None]
  - SWELLING FACE [None]
  - RASH [None]
  - SKIN EXFOLIATION [None]
  - OEDEMA PERIPHERAL [None]
